FAERS Safety Report 17839927 (Version 1)
Quarter: 2020Q2

REPORT INFORMATION
  Report Type: Spontaneous
  Country: US (occurrence: US)
  Receive Date: 20200529
  Receipt Date: 20200529
  Transmission Date: 20200714
  Serious: No
  Sender: FDA-Public Use
  Company Number: US-GLAXOSMITHKLINE-US2020089517

PATIENT
  Sex: Female

DRUGS (3)
  1. ALBUTEROL SULFATE INHALATION POWDER [Suspect]
     Active Substance: ALBUTEROL SULFATE
     Indication: PRODUCT USED FOR UNKNOWN INDICATION
     Dosage: UNK
     Route: 055
  2. FLOVENT HFA [Suspect]
     Active Substance: FLUTICASONE PROPIONATE
     Indication: BRONCHIAL HYPERREACTIVITY
     Dosage: 2 PUFF(S), BID
     Route: 055
  3. FLOVENT HFA [Suspect]
     Active Substance: FLUTICASONE PROPIONATE
     Indication: COUGH

REACTIONS (3)
  - Palpitations [Unknown]
  - Wrong technique in device usage process [Unknown]
  - Product use in unapproved indication [Unknown]
